FAERS Safety Report 24524853 (Version 2)
Quarter: 2024Q4

REPORT INFORMATION
  Report Type: Spontaneous
  Country: PR (occurrence: PR)
  Receive Date: 20241019
  Receipt Date: 20241024
  Transmission Date: 20250115
  Serious: No
  Sender: ABBVIE
  Company Number: PR-ABBVIE-5968704

PATIENT
  Sex: Female

DRUGS (1)
  1. ELAHERE [Suspect]
     Active Substance: MIRVETUXIMAB SORAVTANSINE-GYNX
     Indication: Ovarian cancer
     Dosage: 5 MG/ML?TITRATED TO 4 MG
     Route: 042

REACTIONS (2)
  - Neuropathy peripheral [Not Recovered/Not Resolved]
  - Pain [Unknown]
